FAERS Safety Report 18964516 (Version 1)
Quarter: 2021Q1

REPORT INFORMATION
  Report Type: Spontaneous
  Country: US (occurrence: US)
  Receive Date: 20210303
  Receipt Date: 20210303
  Transmission Date: 20210420
  Serious: No
  Sender: FDA-Public Use
  Company Number: US-AMNEAL PHARMACEUTICALS-2020-AMRX-03566

PATIENT
  Sex: Male

DRUGS (6)
  1. METOPROLOL. [Interacting]
     Active Substance: METOPROLOL
     Indication: PRODUCT USED FOR UNKNOWN INDICATION
     Dosage: UNK UNK, QD
     Route: 065
  2. RYTARY [Interacting]
     Active Substance: CARBIDOPA\LEVODOPA
     Dosage: 2 CAPSULES, QID
     Route: 048
  3. RYTARY [Suspect]
     Active Substance: CARBIDOPA\LEVODOPA
     Indication: PARKINSON^S DISEASE
     Dosage: 2 CAPSULES, 5 /DAY
     Route: 048
  4. RYTARY [Interacting]
     Active Substance: CARBIDOPA\LEVODOPA
     Dosage: 2 CAPSULES, QID
     Route: 048
  5. IMDUR [Interacting]
     Active Substance: ISOSORBIDE MONONITRATE
     Indication: PRODUCT USED FOR UNKNOWN INDICATION
     Dosage: UNK UNK, QD
     Route: 065
  6. NOVOLOG [Interacting]
     Active Substance: INSULIN ASPART
     Indication: DIABETES MELLITUS
     Dosage: UNK
     Route: 065

REACTIONS (4)
  - Drug interaction [Not Recovered/Not Resolved]
  - Balance disorder [Not Recovered/Not Resolved]
  - Dizziness postural [Unknown]
  - Constipation [Not Recovered/Not Resolved]
